FAERS Safety Report 12671730 (Version 1)
Quarter: 2016Q3

REPORT INFORMATION
  Report Type: Spontaneous
  Country: US (occurrence: None)
  Receive Date: 20160819
  Receipt Date: 20160819
  Transmission Date: 20161109
  Serious: No
  Sender: FDA-Public Use
  Company Number: None

PATIENT
  Age: 64 Year
  Sex: Male

DRUGS (2)
  1. SOVALDI [Suspect]
     Active Substance: SOFOSBUVIR
     Indication: HEPATITIS C
     Dosage: CURRENTLY COMPLETING 4TH MONTH
     Route: 048
  2. DAKLINZA [Suspect]
     Active Substance: DACLATASVIR
     Indication: HEPATITIS C
     Dosage: CURRENTLY COMPLETING 4TH MONTH
     Route: 048

REACTIONS (4)
  - Insomnia [None]
  - Weight increased [None]
  - Renal impairment [None]
  - Hepatic enzyme increased [None]

NARRATIVE: CASE EVENT DATE: 20160811
